FAERS Safety Report 17544688 (Version 1)
Quarter: 2020Q1

REPORT INFORMATION
  Report Type: Spontaneous
  Country: DE (occurrence: DE)
  Receive Date: 20200316
  Receipt Date: 20200316
  Transmission Date: 20200409
  Serious: Yes (Hospitalization)
  Sender: FDA-Public Use
  Company Number: DE-ACCORD-175735

PATIENT
  Age: 8 Year
  Sex: Male
  Weight: 27 kg

DRUGS (1)
  1. TOPIRAMATE. [Suspect]
     Active Substance: TOPIRAMATE
     Indication: PARTIAL SEIZURES
     Dosage: 225 MG MILLGRAMS EVERY DAY, 3 SEPARATED DOSES
     Route: 048

REACTIONS (2)
  - Partial seizures with secondary generalisation [Unknown]
  - Vomiting [Unknown]

NARRATIVE: CASE EVENT DATE: 20190228
